FAERS Safety Report 12470800 (Version 2)
Quarter: 2016Q2

REPORT INFORMATION
  Report Type: Spontaneous
  Country: FR (occurrence: FR)
  Receive Date: 20160616
  Receipt Date: 20160629
  Transmission Date: 20160815
  Serious: Yes (Hospitalization)
  Sender: FDA-Public Use
  Company Number: FR-ROCHE-1775873

PATIENT
  Age: 58 Year
  Sex: Female

DRUGS (1)
  1. XELODA [Suspect]
     Active Substance: CAPECITABINE
     Indication: BREAST CANCER METASTATIC
     Dosage: (LOT: X3787B04 FOR DOSAGE OF 150MG AND X3672B01 FOR DOSAGE 500MG)
     Route: 048
     Dates: start: 20160425, end: 20160428

REACTIONS (5)
  - Mucosal inflammation [Recovering/Resolving]
  - Neutropenia [Recovering/Resolving]
  - Alopecia [Recovering/Resolving]
  - Staphylococcal sepsis [Recovering/Resolving]
  - Thrombocytopenia [Recovering/Resolving]

NARRATIVE: CASE EVENT DATE: 20160428
